FAERS Safety Report 9776112 (Version 1)
Quarter: 2013Q4

REPORT INFORMATION
  Report Type: Spontaneous
  Country: AU (occurrence: AU)
  Receive Date: 20131220
  Receipt Date: 20131220
  Transmission Date: 20140711
  Serious: Yes (Hospitalization, Other)
  Sender: FDA-Public Use
  Company Number: AU-ABBVIE-13P-008-1182222-00

PATIENT
  Age: 36 Year
  Sex: Female

DRUGS (15)
  1. VALPROIC ACID [Suspect]
     Indication: AFFECTIVE DISORDER
     Dosage: AT BEDTIME
     Dates: end: 20130918
  2. VALPROIC ACID [Suspect]
     Dates: start: 20130918
  3. VALPROIC ACID [Suspect]
  4. CLOZARIL [Suspect]
     Indication: SCHIZOPHRENIA
     Route: 048
     Dates: start: 20030915, end: 20130825
  5. CLOZARIL [Suspect]
     Route: 048
     Dates: start: 20130904
  6. CLOZARIL [Suspect]
     Dosage: AT BEDTIME
     Route: 048
     Dates: end: 201309
  7. CLOZARIL [Suspect]
     Dosage: AT BEDTIME
     Route: 048
     Dates: start: 201309, end: 201310
  8. CLOZARIL [Suspect]
     Route: 048
     Dates: start: 20131015, end: 201311
  9. CLOZARIL [Suspect]
     Route: 048
  10. CLOZARIL [Suspect]
     Route: 048
  11. CLOZARIL [Suspect]
     Route: 048
  12. CLOZARIL [Suspect]
     Route: 048
     Dates: start: 201310, end: 201311
  13. PERINDOPRIL [Concomitant]
     Indication: PRODUCT USED FOR UNKNOWN INDICATION
  14. MEDROXYPROGESTERONE [Concomitant]
     Indication: PRODUCT USED FOR UNKNOWN INDICATION
  15. DIAZEPAM [Concomitant]
     Indication: PRODUCT USED FOR UNKNOWN INDICATION
     Dates: start: 201110

REACTIONS (6)
  - Schizophrenia [Unknown]
  - Urinary tract infection [Unknown]
  - White blood cell count decreased [Unknown]
  - Anticonvulsant drug level decreased [Unknown]
  - Antipsychotic drug level decreased [Recovered/Resolved]
  - Drug resistance [Unknown]
